FAERS Safety Report 7115369-7 (Version None)
Quarter: 2010Q4

REPORT INFORMATION
  Report Type: 
  Country: None (occurrence: None)
  Receive Date: 20101117
  Receipt Date: 20101117
  Transmission Date: 20110411
  Serious: Yes (Other)
  Sender: FDA-Public Use
  Company Number: None

PATIENT
  Age: 77 Year
  Sex: Male
  Weight: 92.9874 kg

DRUGS (2)
  1. FLECTOR [Suspect]
     Indication: EXOSTOSIS
     Dosage: DEPENDS ON PATCH SIZE EVERY 12 HOURS
     Dates: start: 20101012, end: 20101115
  2. FLECTOR [Suspect]
     Indication: PAIN
     Dosage: DEPENDS ON PATCH SIZE EVERY 12 HOURS
     Dates: start: 20101012, end: 20101115

REACTIONS (1)
  - ABDOMINAL PAIN UPPER [None]
